FAERS Safety Report 18464482 (Version 1)
Quarter: 2020Q4

REPORT INFORMATION
  Report Type: Spontaneous
  Country: US (occurrence: US)
  Receive Date: 20201104
  Receipt Date: 20201104
  Transmission Date: 20210114
  Serious: No
  Sender: FDA-Public Use
  Company Number: US-AMNEAL PHARMACEUTICALS-2020-AMRX-02482

PATIENT
  Sex: Female

DRUGS (3)
  1. GABAPENTIN. [Concomitant]
     Active Substance: GABAPENTIN
     Indication: PAIN
     Dosage: UNK
     Route: 065
  2. BUPRENORPHINE TRANSDERMAL SYSTEM [Suspect]
     Active Substance: BUPRENORPHINE
     Indication: PAIN
     Dosage: 1 PATCH 1 /WEEK
     Route: 062
     Dates: start: 202007, end: 202007
  3. NARCO [Concomitant]
     Indication: PAIN
     Dosage: UNK
     Route: 065

REACTIONS (5)
  - Drug screen negative [Recovered/Resolved]
  - Pain [Recovered/Resolved]
  - Product substitution issue [Unknown]
  - Drug ineffective [Unknown]
  - Product adhesion issue [Unknown]

NARRATIVE: CASE EVENT DATE: 202007
